FAERS Safety Report 8485965-3 (Version None)
Quarter: 2012Q3

REPORT INFORMATION
  Report Type: 
  Country: None (occurrence: None)
  Receive Date: 20120703
  Receipt Date: 20120622
  Transmission Date: 20120928
  Serious: Yes (Hospitalization)
  Sender: FDA-Public Use
  Company Number: JP-VERTEX PHARMACEUTICALS INC.-AE-2012-009478

PATIENT
  Age: 64 Year
  Sex: Female

DRUGS (8)
  1. TALION [Concomitant]
     Route: 048
     Dates: start: 20120417
  2. ACETAMINOPHEN [Concomitant]
     Route: 048
     Dates: start: 20120418
  3. RABEPRAZOLE SODIUM [Concomitant]
     Route: 048
     Dates: start: 20120429
  4. MICONAZOLE [Concomitant]
     Route: 048
     Dates: start: 20120502, end: 20120502
  5. PERAPRIN [Concomitant]
     Route: 048
     Dates: start: 20120422
  6. TELAVIC (TELAPREVIR) [Suspect]
     Indication: HEPATITIS C
     Route: 048
     Dates: start: 20120418, end: 20120420
  7. RIBAVIRIN [Concomitant]
     Route: 048
     Dates: start: 20120418
  8. PEGINTERFERON ALFA-2B [Concomitant]
     Route: 058
     Dates: start: 20120418

REACTIONS (1)
  - DRUG ERUPTION [None]
